FAERS Safety Report 15605576 (Version 1)
Quarter: 2018Q4

REPORT INFORMATION
  Report Type: Spontaneous
  Country: US (occurrence: US)
  Receive Date: 20181112
  Receipt Date: 20181112
  Transmission Date: 20190205
  Serious: No
  Sender: FDA-Public Use
  Company Number: US-009507513-1811USA001251

PATIENT
  Age: 19 Year
  Sex: Female

DRUGS (2)
  1. CUBICIN [Suspect]
     Active Substance: DAPTOMYCIN
     Indication: WOUND INFECTION BACTERIAL
  2. INVANZ [Suspect]
     Active Substance: ERTAPENEM SODIUM
     Indication: WOUND INFECTION BACTERIAL
     Route: 042

REACTIONS (1)
  - Product use in unapproved indication [Unknown]
